FAERS Safety Report 8175010-1 (Version None)
Quarter: 2012Q1

REPORT INFORMATION
  Report Type: 
  Country: None (occurrence: None)
  Receive Date: 20120229
  Receipt Date: 20120221
  Transmission Date: 20120608
  Serious: Yes (Hospitalization)
  Sender: FDA-Public Use
  Company Number: FR-ASTRAZENECA-2012SE11953

PATIENT
  Age: 80 Year
  Sex: Male

DRUGS (5)
  1. GONADORELIN INJ [Suspect]
     Indication: PROSTATE CANCER
     Route: 065
     Dates: start: 20110901, end: 20111201
  2. ATORVASTATIN [Concomitant]
  3. CASODEX [Suspect]
     Indication: PROSTATE CANCER
     Route: 048
     Dates: start: 20110901, end: 20120120
  4. IXEL [Concomitant]
  5. BISOPROLOL FUMARATE AND HYDROCHLOROTHIAZIDE [Concomitant]

REACTIONS (1)
  - PURPURA NON-THROMBOCYTOPENIC [None]
